FAERS Safety Report 21379705 (Version 1)
Quarter: 2022Q3

REPORT INFORMATION
  Report Type: Spontaneous
  Country: GB (occurrence: GB)
  Receive Date: 20220927
  Receipt Date: 20220927
  Transmission Date: 20221027
  Serious: Yes (Hospitalization, Other)
  Sender: FDA-Public Use
  Company Number: GB-NOVARTISPH-NVSC2022GB215170

PATIENT
  Age: 18 Year
  Sex: Male

DRUGS (3)
  1. ONDANSETRON [Suspect]
     Active Substance: ONDANSETRON
     Indication: Product used for unknown indication
     Dosage: 4 MG
     Route: 065
  2. FENTANYL [Suspect]
     Active Substance: FENTANYL
     Indication: Product used for unknown indication
     Dosage: 100 LG
     Route: 065
  3. SCOPOLAMINE [Concomitant]
     Active Substance: SCOPOLAMINE
     Indication: Serotonin syndrome
     Dosage: UNK
     Route: 065

REACTIONS (1)
  - Serotonin syndrome [Recovered/Resolved]
